FAERS Safety Report 18086399 (Version 1)
Quarter: 2020Q3

REPORT INFORMATION
  Report Type: Spontaneous
  Country: US (occurrence: US)
  Receive Date: 20200728
  Receipt Date: 20200728
  Transmission Date: 20201103
  Serious: Yes (Life-Threatening, Hospitalization)
  Sender: FDA-Public Use
  Company Number: None

PATIENT
  Age: 73 Year
  Sex: Male

DRUGS (1)
  1. CAPECITABINE TAB 500MG [Suspect]
     Active Substance: CAPECITABINE
     Route: 048
     Dates: start: 202006

REACTIONS (8)
  - Blood pressure decreased [None]
  - Neuropathy peripheral [None]
  - Diarrhoea [None]
  - Skin exfoliation [None]
  - Wrong technique in product usage process [None]
  - Weight decreased [None]
  - Stomatitis [None]
  - Therapy cessation [None]

NARRATIVE: CASE EVENT DATE: 20200718
